FAERS Safety Report 20505124 (Version 2)
Quarter: 2022Q1

REPORT INFORMATION
  Report Type: Spontaneous
  Country: US (occurrence: US)
  Receive Date: 20220223
  Receipt Date: 20220308
  Transmission Date: 20220423
  Serious: Yes (Other)
  Sender: FDA-Public Use
  Company Number: US-ORGANON-O2202USA001779

PATIENT
  Age: 23 Year
  Sex: Female
  Weight: 68.481 kg

DRUGS (1)
  1. NEXPLANON [Suspect]
     Active Substance: ETONOGESTREL
     Dosage: 1 ROD IN RIGHT ARM
     Route: 059
     Dates: start: 20220214, end: 20220214

REACTIONS (2)
  - Device expulsion [Unknown]
  - No adverse event [Unknown]

NARRATIVE: CASE EVENT DATE: 20220214
